FAERS Safety Report 6509858-3 (Version None)
Quarter: 2009Q4

REPORT INFORMATION
  Report Type: 
  Country: None (occurrence: None)
  Receive Date: 20091222
  Receipt Date: 20091215
  Transmission Date: 20100525
  Serious: Yes (Hospitalization)
  Sender: FDA-Public Use
  Company Number: NL-BAXTER-2009BH019476

PATIENT
  Age: 43 Year
  Sex: Male

DRUGS (5)
  1. GAMMAGARD LIQUID [Suspect]
     Indication: MULTIPLE SCLEROSIS
     Route: 042
     Dates: start: 20091214, end: 20091214
  2. GAMMAGARD LIQUID [Suspect]
     Indication: OFF LABEL USE
     Route: 042
     Dates: start: 20091214, end: 20091214
  3. GAMMAGARD LIQUID [Suspect]
     Route: 042
     Dates: start: 20091214, end: 20091214
  4. GAMMAGARD LIQUID [Suspect]
     Route: 042
     Dates: start: 20091214, end: 20091214
  5. SODIUM CHLORIDE 0.9% IN PLASTIC CONTAINER [Suspect]
     Indication: INTRAVENOUS CATHETER MANAGEMENT
     Route: 065
     Dates: start: 20091214, end: 20091214

REACTIONS (4)
  - CONVULSION [None]
  - FEELING COLD [None]
  - HYPERTENSION [None]
  - VOMITING [None]
